FAERS Safety Report 14525108 (Version 1)
Quarter: 2018Q1

REPORT INFORMATION
  Report Type: Report from Study
  Country: BE (occurrence: BE)
  Receive Date: 20180213
  Receipt Date: 20180213
  Transmission Date: 20180509
  Serious: Yes (Death, Hospitalization, Other)
  Sender: FDA-Public Use
  Company Number: PHHY2018BE014252

PATIENT
  Age: 62 Year
  Sex: Female

DRUGS (7)
  1. ASAFLOW [Concomitant]
     Active Substance: ASPIRIN
     Indication: PRODUCT USED FOR UNKNOWN INDICATION
     Dosage: 80 MG, QD
     Route: 048
  2. MEKINIST [Suspect]
     Active Substance: TRAMETINIB DIMETHYL SULFOXIDE
     Indication: NON-SMALL CELL LUNG CANCER
     Dosage: 2 MG, QD AT 10 AM
     Route: 048
     Dates: start: 20171017, end: 20180122
  3. BURINEX [Concomitant]
     Active Substance: BUMETANIDE
     Indication: PRODUCT USED FOR UNKNOWN INDICATION
     Dosage: 1 MG, QD
     Route: 048
  4. INNOHEP [Concomitant]
     Active Substance: TINZAPARIN SODIUM
     Indication: PRODUCT USED FOR UNKNOWN INDICATION
     Dosage: 0.45 ML, QD
     Route: 058
  5. DABRAFENIB [Suspect]
     Active Substance: DABRAFENIB
     Indication: NON-SMALL CELL LUNG CANCER
     Dosage: 150 MG, BID (2 X 75 MG AT 10.00 AM; 2 X 75 MG AT 10.00 PM)
     Route: 048
     Dates: start: 20171017, end: 20180122
  6. BURINEX [Concomitant]
     Active Substance: BUMETANIDE
     Dosage: UNK
     Route: 065
     Dates: start: 20180119
  7. AUGMENTIN [Concomitant]
     Active Substance: AMOXICILLIN\CLAVULANATE POTASSIUM
     Indication: PRODUCT USED FOR UNKNOWN INDICATION
     Dosage: 1 DF, QD (1G AND 62.5 MG)
     Route: 048
     Dates: start: 20180117

REACTIONS (5)
  - Therapy partial responder [Unknown]
  - Malignant pleural effusion [Fatal]
  - Ejection fraction decreased [Unknown]
  - Dyspnoea [Fatal]
  - Pulmonary embolism [Unknown]

NARRATIVE: CASE EVENT DATE: 20180119
